FAERS Safety Report 10257499 (Version 1)
Quarter: 2014Q2

REPORT INFORMATION
  Report Type: Spontaneous
  Country: US (occurrence: US)
  Receive Date: 20140625
  Receipt Date: 20140625
  Transmission Date: 20141212
  Serious: No
  Sender: FDA-Public Use
  Company Number: US-GLAXOSMITHKLINE-A1045576A

PATIENT
  Age: 81 Year
  Sex: Female

DRUGS (5)
  1. VERAMYST [Suspect]
     Indication: INCREASED UPPER AIRWAY SECRETION
     Route: 045
     Dates: start: 20131015
  2. ALPRAZOLAM [Concomitant]
  3. METOPROLOL SUCCINATE [Concomitant]
  4. LOSARTAN [Concomitant]
  5. EYE DROP [Concomitant]
     Indication: CATARACT

REACTIONS (4)
  - Feeling cold [Recovering/Resolving]
  - Chills [Unknown]
  - Dry mouth [Unknown]
  - Balance disorder [Unknown]
